FAERS Safety Report 8640680 (Version 4)
Quarter: 2012Q4

REPORT INFORMATION
  Report Type: 
  Country: US (occurrence: US)
  Receive Date: 20120628
  Receipt Date: 20121212
  Transmission Date: 20130627
  Serious: Yes (Hospitalization, Other)
  Sender: FDA-Public Use
  Company Number: US-BAYER-2012-062454

PATIENT
  Age: 31 Year
  Sex: Female
  Weight: 80.73 kg

DRUGS (7)
  1. YAZ [Suspect]
  2. YASMIN [Suspect]
     Dosage: UNK
     Dates: start: 20070410, end: 20100816
  3. OCELLA [Suspect]
     Dosage: UNK
     Dates: start: 20070410, end: 20100816
  4. XANAX [Concomitant]
     Dosage: 0.25 mg, TID
     Route: 048
  5. LEXAPRO [Concomitant]
     Indication: PANIC DISORDER
     Dosage: 10 mg, daily
     Route: 048
  6. TYLENOL PM [Concomitant]
     Route: 048
  7. VICODIN [Concomitant]

REACTIONS (3)
  - Cerebrovascular accident [None]
  - Intracranial venous sinus thrombosis [None]
  - Injury [None]
